FAERS Safety Report 12971054 (Version 2)
Quarter: 2016Q4

REPORT INFORMATION
  Report Type: Spontaneous
  Country: US (occurrence: US)
  Receive Date: 20161123
  Receipt Date: 20161128
  Transmission Date: 20170207
  Serious: No
  Sender: FDA-Public Use
  Company Number: US-JAZZ-2016-US-018968

PATIENT
  Age: 52 Year
  Sex: Female

DRUGS (20)
  1. XYREM [Suspect]
     Active Substance: SODIUM OXYBATE
     Indication: NARCOLEPSY
     Dosage: 4.5 G, BID
     Route: 048
     Dates: start: 201609
  2. PREDNISONE. [Concomitant]
     Active Substance: PREDNISONE
  3. EDARBYCLOR [Concomitant]
     Active Substance: AZILSARTAN KAMEDOXOMIL\CHLORTHALIDONE
  4. ZETIA [Concomitant]
     Active Substance: EZETIMIBE
  5. ZETONNA [Concomitant]
     Active Substance: CICLESONIDE
  6. VENTOLIN HFA [Concomitant]
     Active Substance: ALBUTEROL SULFATE
  7. CHLORTHALIDONE. [Concomitant]
     Active Substance: CHLORTHALIDONE
  8. NORVASC [Concomitant]
     Active Substance: AMLODIPINE BESYLATE
  9. CRESTOR [Concomitant]
     Active Substance: ROSUVASTATIN CALCIUM
  10. FLONASE ALLERGY RLF                           /00908302/ [Concomitant]
  11. JANUMET [Concomitant]
     Active Substance: METFORMIN HYDROCHLORIDE\SITAGLIPTIN PHOSPHATE
  12. XOPENEX HFA [Concomitant]
     Active Substance: LEVALBUTEROL TARTRATE
  13. JANUVIA [Concomitant]
     Active Substance: SITAGLIPTIN PHOSPHATE
  14. BENADRYL [Concomitant]
     Active Substance: DIPHENHYDRAMINE HYDROCHLORIDE
  15. GABAPENTIN. [Concomitant]
     Active Substance: GABAPENTIN
  16. SINGULAIR [Concomitant]
     Active Substance: MONTELUKAST SODIUM
  17. TIZANIDINE HCL [Concomitant]
     Active Substance: TIZANIDINE HYDROCHLORIDE
  18. CEFUROXIME AXETIL. [Concomitant]
     Active Substance: CEFUROXIME AXETIL
  19. ADDERALL [Concomitant]
     Active Substance: AMPHETAMINE ASPARTATE\AMPHETAMINE SULFATE\DEXTROAMPHETAMINE SACCHARATE\DEXTROAMPHETAMINE SULFATE
  20. SYMBICORT [Concomitant]
     Active Substance: BUDESONIDE\FORMOTEROL FUMARATE DIHYDRATE

REACTIONS (1)
  - Nasopharyngitis [Not Recovered/Not Resolved]

NARRATIVE: CASE EVENT DATE: 201609
